APPROVED DRUG PRODUCT: MUPIROCIN
Active Ingredient: MUPIROCIN
Strength: 2%
Dosage Form/Route: OINTMENT;TOPICAL
Application: A065085 | Product #001 | TE Code: AB
Applicant: TEVA PHARMACEUTICALS USA INC
Approved: Nov 7, 2003 | RLD: No | RS: No | Type: RX